FAERS Safety Report 16138176 (Version 1)
Quarter: 2019Q1

REPORT INFORMATION
  Report Type: Spontaneous
  Country: FR (occurrence: FR)
  Receive Date: 20190330
  Receipt Date: 20190330
  Transmission Date: 20190418
  Serious: Yes (Hospitalization)
  Sender: FDA-Public Use
  Company Number: FR-ACCORD-116732

PATIENT
  Age: 68 Year
  Sex: Female
  Weight: 56 kg

DRUGS (9)
  1. OXALIPLATIN. [Suspect]
     Active Substance: OXALIPLATIN
     Indication: ADENOCARCINOMA OF COLON
     Dosage: C1-C2: 140MG / CYCLE AND C3: 120MG / CYCLE
     Route: 042
     Dates: start: 20180924, end: 20181023
  2. FOLINIC ACID [Suspect]
     Active Substance: LEUCOVORIN
     Indication: ADENOCARCINOMA OF COLON
     Dosage: C1-C2:680 MG/CYCLE ET C3: 640 MG/CYCLE
     Route: 042
     Dates: start: 20180924, end: 20181023
  3. ONDANSETRON [Concomitant]
     Active Substance: ONDANSETRON
  4. APREPITANT. [Concomitant]
     Active Substance: APREPITANT
  5. FLUOROURACILE ACCORD [Suspect]
     Active Substance: FLUOROURACIL
     Indication: ADENOCARCINOMA OF COLON
     Dosage: C1-C2: 5300MG / CYCLE AND C3: 3900MG / CYCLE, 50 MG/ML, SOLUTION POUR PERFUSIONL
     Route: 042
     Dates: start: 20180924, end: 20181022
  6. AMIKACIN. [Suspect]
     Active Substance: AMIKACIN
     Indication: SEPSIS
     Route: 042
     Dates: start: 20181102
  7. METHYLPREDNISOLONE. [Concomitant]
     Active Substance: METHYLPREDNISOLONE
  8. FILGRASTIM [Concomitant]
     Active Substance: FILGRASTIM
  9. PIPERACILLINE TAZOBACTAM KABI [Suspect]
     Active Substance: PIPERACILLIN SODIUM\TAZOBACTAM SODIUM
     Indication: SEPSIS
     Dosage: DU 31/10 AU 02/11: 4GX3/J PUIS DU 02 AU 06/11: 4GX4/J
     Route: 042
     Dates: start: 20181031, end: 20181106

REACTIONS (1)
  - Encephalopathy [Recovering/Resolving]

NARRATIVE: CASE EVENT DATE: 20181104
